FAERS Safety Report 16720584 (Version 1)
Quarter: 2019Q3

REPORT INFORMATION
  Report Type: Spontaneous
  Country: IN (occurrence: IN)
  Receive Date: 20190820
  Receipt Date: 20190820
  Transmission Date: 20191005
  Serious: Yes (Other)
  Sender: FDA-Public Use
  Company Number: IN-SA-2019SA220797

PATIENT
  Age: 30 Year
  Sex: Female

DRUGS (1)
  1. CLOMIFENE CITRATE [Suspect]
     Active Substance: CLOMIPHENE
     Indication: INFERTILITY
     Dosage: 50 MG, QD 5-DAY COURSE MONTHLY

REACTIONS (9)
  - Hypersensitivity vasculitis [Recovered/Resolved]
  - Oedema peripheral [Recovered/Resolved]
  - Rash generalised [Recovered/Resolved]
  - Rash maculo-papular [Recovered/Resolved]
  - Generalised erythema [Recovered/Resolved]
  - Pruritus generalised [Recovered/Resolved]
  - Palpable purpura [Recovered/Resolved]
  - Petechiae [Recovered/Resolved]
  - Rash erythematous [Recovered/Resolved]
